FAERS Safety Report 9261513 (Version 2)
Quarter: 2013Q2

REPORT INFORMATION
  Report Type: Spontaneous
  Country: TR (occurrence: TR)
  Receive Date: 20130429
  Receipt Date: 20130507
  Transmission Date: 20140414
  Serious: Yes (Hospitalization)
  Sender: FDA-Public Use
  Company Number: PHHY2013TR040097

PATIENT
  Age: 64 Year
  Sex: Female

DRUGS (4)
  1. DEXAMETHASONE [Suspect]
     Indication: PLASMA CELL MYELOMA
     Dosage: 40 MG/DAY
  2. VINCRISTINE [Suspect]
     Indication: PLASMA CELL MYELOMA
     Dosage: 0.4 MG/DAY
  3. DOXORUBICIN [Suspect]
     Dosage: 9 MG/M2/DAY
  4. BORTEZOMIB [Concomitant]
     Dosage: 1.3 MG/M2 PER DAY FOR 4 DAYS

REACTIONS (7)
  - Pancreatitis acute [Recovered/Resolved]
  - Pyrexia [Recovered/Resolved]
  - Staphylococcal infection [Recovered/Resolved]
  - Inflammation [Recovered/Resolved]
  - Dyspnoea [Recovered/Resolved]
  - Abdominal pain [Recovered/Resolved]
  - Pulmonary embolism [Unknown]
